FAERS Safety Report 17957809 (Version 1)
Quarter: 2020Q2

REPORT INFORMATION
  Report Type: Report from Study
  Country: IN (occurrence: IN)
  Receive Date: 20200629
  Receipt Date: 20200629
  Transmission Date: 20200714
  Serious: Yes (Other)
  Sender: FDA-Public Use
  Company Number: IN-MYLANLABS-2020M1059190

PATIENT
  Sex: Female

DRUGS (2)
  1. CAPECITABINE. [Suspect]
     Active Substance: CAPECITABINE
     Indication: OVARIAN EPITHELIAL CANCER
     Dosage: ON DAY 1-14 OF EACH CYCLE; CYCLE WAS REPEATED IN EVERY 3 WEEKS
     Route: 065
  2. BEVACIZUMAB. [Suspect]
     Active Substance: BEVACIZUMAB
     Indication: OVARIAN EPITHELIAL CANCER
     Dosage: ON DAY 1 OF EACH CYCLE; CYCLE WAS REPEATED IN EVERY 3 WEEKS
     Route: 065

REACTIONS (1)
  - Intestinal perforation [Unknown]
